FAERS Safety Report 23354965 (Version 1)
Quarter: 2024Q1

REPORT INFORMATION
  Report Type: Spontaneous
  Country: GB (occurrence: GB)
  Receive Date: 20240101
  Receipt Date: 20240101
  Transmission Date: 20240410
  Serious: Yes (Other)
  Sender: FDA-Public Use
  Company Number: None

PATIENT
  Age: 68 Year
  Sex: Female
  Weight: 80 kg

DRUGS (12)
  1. BEMPEDOIC ACID [Suspect]
     Active Substance: BEMPEDOIC ACID
     Indication: Product used for unknown indication
     Dosage: 180 MG, QD
     Route: 065
     Dates: start: 20231004
  2. EZETIMIBE [Suspect]
     Active Substance: EZETIMIBE
     Indication: Product used for unknown indication
     Dosage: 10 MG, QD
     Route: 065
  3. AMITRIPTYLINE HYDROCHLORIDE [Concomitant]
     Active Substance: AMITRIPTYLINE HYDROCHLORIDE
     Indication: Ill-defined disorder
     Dosage: UNK UNK, AS NEEDED,(TAKE ONE OR TWO AT NIGHT AS NEEDED)
     Route: 065
     Dates: start: 20231031, end: 20231128
  4. ASPIRIN [Concomitant]
     Active Substance: ASPIRIN
     Indication: Ill-defined disorder
     Dosage: UNK UNK, QD,(ONCE DAILY TO PREVENT HEART ATTACKS AND STROKES)
     Route: 065
     Dates: start: 20220906
  5. ATORVASTATIN [Concomitant]
     Active Substance: ATORVASTATIN
     Indication: Ill-defined disorder
     Dosage: UNK UNK, QD,(TAKE ONE DAILY)
     Route: 065
     Dates: start: 20230717
  6. BISOPROLOL [Concomitant]
     Active Substance: BISOPROLOL\BISOPROLOL FUMARATE
     Indication: Ill-defined disorder
     Dosage: UNK UNK, QD,(TAKE ONE DAILY)
     Route: 065
     Dates: start: 20220906
  7. DIHYDROCODEINE [Concomitant]
     Active Substance: DIHYDROCODEINE
     Indication: Ill-defined disorder
     Dosage: UNK UNK, AS NEEDED,(TAKE ONE OR TWO EVERY 4-6 HRS AS NEEDED )
     Route: 065
     Dates: start: 20231031, end: 20231130
  8. DOXAZOSIN [Concomitant]
     Active Substance: DOXAZOSIN MESYLATE
     Indication: Ill-defined disorder
     Dosage: UNK UNK, QD,(TAKE ONE DAILY)
     Route: 065
     Dates: start: 20220906
  9. GABAPENTIN [Concomitant]
     Active Substance: GABAPENTIN
     Indication: Ill-defined disorder
     Dosage: UNK UNK, TID,(TAKE ONE 3 TIMES/DAY AS DIRECTED)
     Route: 065
     Dates: start: 20231201
  10. INDAPAMIDE [Concomitant]
     Active Substance: INDAPAMIDE
     Indication: Ill-defined disorder
     Dosage: UNK UNK, QD,(TAKE ONE EACH MORNING)
     Route: 065
     Dates: start: 20220906
  11. LANSOPRAZOLE [Concomitant]
     Active Substance: LANSOPRAZOLE
     Indication: Ill-defined disorder
     Dosage: UNK UNK, QD,(TAKE ONE ONCE DAILY)
     Route: 065
     Dates: start: 20220906
  12. LOSARTAN [Concomitant]
     Active Substance: LOSARTAN
     Indication: Ill-defined disorder
     Dosage: UNK UNK, QD,(TAKE ONE DAILY)
     Route: 065
     Dates: start: 20220906

REACTIONS (1)
  - Blood uric acid abnormal [Recovering/Resolving]
